FAERS Safety Report 10299920 (Version 1)
Quarter: 2014Q3

REPORT INFORMATION
  Report Type: Spontaneous
  Country: US (occurrence: US)
  Receive Date: 20140711
  Receipt Date: 20140711
  Transmission Date: 20150326
  Serious: No
  Sender: FDA-Public Use
  Company Number: US-GILEAD-2013-0085124

PATIENT
  Age: 59 Year
  Sex: Female

DRUGS (2)
  1. LETAIRIS [Suspect]
     Active Substance: AMBRISENTAN
     Indication: PRODUCT USED FOR UNKNOWN INDICATION
     Dosage: 10 MG, QD
     Route: 048
     Dates: start: 20130721
  2. REMODULIN [Concomitant]
     Active Substance: TREPROSTINIL
     Dosage: 0.028 ML, Q1HR
     Route: 042

REACTIONS (5)
  - Heart rate increased [Unknown]
  - Fatigue [Unknown]
  - Limb discomfort [Unknown]
  - Hypoaesthesia [Unknown]
  - Dyspnoea [Unknown]

NARRATIVE: CASE EVENT DATE: 20131006
